FAERS Safety Report 24793209 (Version 1)
Quarter: 2024Q4

REPORT INFORMATION
  Report Type: Spontaneous
  Country: ES (occurrence: ES)
  Receive Date: 20241231
  Receipt Date: 20241231
  Transmission Date: 20250115
  Serious: Yes (Other)
  Sender: ACCORD
  Company Number: ES-MLMSERVICE-20241220-PI303487-00048-2

PATIENT
  Age: 54 Year
  Sex: Female

DRUGS (2)
  1. ARIPIPRAZOLE [Interacting]
     Active Substance: ARIPIPRAZOLE
     Indication: Schizophrenia
  2. AMISULPRIDE [Interacting]
     Active Substance: AMISULPRIDE
     Indication: Schizophrenia

REACTIONS (2)
  - Psychotic disorder [Recovered/Resolved]
  - Drug interaction [Recovered/Resolved]
